APPROVED DRUG PRODUCT: GABAPENTIN
Active Ingredient: GABAPENTIN
Strength: 400MG
Dosage Form/Route: CAPSULE;ORAL
Application: A217546 | Product #003 | TE Code: AB
Applicant: LAURUS LABS LTD
Approved: May 12, 2023 | RLD: No | RS: No | Type: RX